FAERS Safety Report 7293756-4 (Version None)
Quarter: 2011Q1

REPORT INFORMATION
  Report Type: 
  Country: None (occurrence: None)
  Receive Date: 20110202
  Receipt Date: 20110118
  Transmission Date: 20110831
  Serious: Yes (Death)
  Sender: FDA-Public Use
  Company Number: B0696707A

PATIENT
  Age: 25 Year
  Sex: Female

DRUGS (2)
  1. BUPROPION HYDROBROMIDE [Suspect]
     Indication: PRODUCT USED FOR UNKNOWN INDICATION
     Dosage: 150 MG/ SINGLE DOSE/ ORAL
     Route: 048
  2. VENLAFAXINE HCL [Suspect]
     Indication: PRODUCT USED FOR UNKNOWN INDICATION
     Dosage: 75 MG/ SIGNLE DOSE/ ORAL
     Route: 048

REACTIONS (10)
  - DISSEMINATED INTRAVASCULAR COAGULATION [None]
  - TACHYCARDIA [None]
  - ABDOMINAL COMPARTMENT SYNDROME [None]
  - CARDIOGENIC SHOCK [None]
  - ACUTE RESPIRATORY DISTRESS SYNDROME [None]
  - RENAL FAILURE ACUTE [None]
  - OVERDOSE [None]
  - HYPOTENSION [None]
  - ACUTE HEPATIC FAILURE [None]
  - GASTROINTESTINAL HAEMORRHAGE [None]
